FAERS Safety Report 6326136-6 (Version None)
Quarter: 2009Q3

REPORT INFORMATION
  Report Type: 
  Country: None (occurrence: None)
  Receive Date: 20090824
  Receipt Date: 20090819
  Transmission Date: 20100115
  Serious: Yes (Other)
  Sender: FDA-Public Use
  Company Number: PHEH2009US09589

PATIENT
  Sex: Male
  Weight: 3.5 kg

DRUGS (5)
  1. SANDIMMUNE [Suspect]
     Indication: HEART TRANSPLANT
     Dosage: 0.5 ML, TID
     Dates: start: 20090721, end: 20090801
  2. SANDIMMUNE [Suspect]
     Dosage: 1000 (UNITS NOT PROVIDED)
  3. CELLCEPT [Concomitant]
  4. ORTHOCLONE OKT3 [Concomitant]
  5. STEROIDS NOS [Concomitant]

REACTIONS (2)
  - ACCIDENTAL OVERDOSE [None]
  - DRUG DISPENSING ERROR [None]
